FAERS Safety Report 15731313 (Version 4)
Quarter: 2019Q2

REPORT INFORMATION
  Report Type: Spontaneous
  Country: DE (occurrence: DE)
  Receive Date: 20181217
  Receipt Date: 20190418
  Transmission Date: 20190711
  Serious: Yes (Life-Threatening, Hospitalization)
  Sender: FDA-Public Use
  Company Number: DE-SAKK-2018SA340594AA

PATIENT
  Age: 27 Year
  Sex: Female

DRUGS (3)
  1. ALEMTUZUMAB [Suspect]
     Active Substance: ALEMTUZUMAB
     Indication: RELAPSING-REMITTING MULTIPLE SCLEROSIS
     Dosage: UNK
     Route: 041
     Dates: start: 2016, end: 201712
  2. L-THYROXIN [LEVOTHYROXINE] [Concomitant]
     Active Substance: LEVOTHYROXINE SODIUM
     Dosage: 50 UG, UNK
     Route: 048
  3. LEVETIRACETAM. [Concomitant]
     Active Substance: LEVETIRACETAM
     Dosage: 1000 MG, QD
     Route: 048

REACTIONS (10)
  - Acute hepatic failure [Unknown]
  - Leukoencephalopathy [Recovering/Resolving]
  - Liver transplant [Recovering/Resolving]
  - Hepatic encephalopathy [Recovering/Resolving]
  - Thrombotic microangiopathy [Recovering/Resolving]
  - Autoimmune hepatitis [Unknown]
  - Autoimmune thyroiditis [Unknown]
  - Hepatitis infectious mononucleosis [Unknown]
  - Acute kidney injury [Recovered/Resolved]
  - Pleural effusion [Recovering/Resolving]

NARRATIVE: CASE EVENT DATE: 201806
